FAERS Safety Report 12673660 (Version 1)
Quarter: 2016Q3

REPORT INFORMATION
  Report Type: Spontaneous
  Country: JO (occurrence: JO)
  Receive Date: 20160822
  Receipt Date: 20160822
  Transmission Date: 20161109
  Serious: Yes (Other)
  Sender: FDA-Public Use
  Company Number: JO-BAYER-2016-156136

PATIENT
  Age: 24 Year
  Sex: Male

DRUGS (2)
  1. MOXIFLOXACIN ORAL [Suspect]
     Active Substance: MOXIFLOXACIN
     Indication: PNEUMONIA
     Dosage: UNK
  2. MOXIFLOXACIN ORAL [Suspect]
     Active Substance: MOXIFLOXACIN
     Indication: AMOEBIASIS

REACTIONS (2)
  - Drug ineffective for unapproved indication [None]
  - Infectious pleural effusion [None]
